FAERS Safety Report 7605358-8 (Version None)
Quarter: 2011Q3

REPORT INFORMATION
  Report Type: 
  Country: None (occurrence: None)
  Receive Date: 20110713
  Receipt Date: 20110706
  Transmission Date: 20111222
  Serious: Yes (Death)
  Sender: FDA-Public Use
  Company Number: FR-ASTELLAS-2011EU004547

PATIENT
  Age: 63 Year
  Sex: Female
  Weight: 64 kg

DRUGS (2)
  1. MICAFUNGIN INJECTION [Suspect]
     Indication: SYSTEMIC CANDIDA
     Dosage: 100 MG, UNKNOWN/D
     Route: 042
     Dates: start: 20101118, end: 20101121
  2. CASPOFUNGIN ACETATE [Concomitant]
     Indication: ANTIFUNGAL TREATMENT
     Dosage: 50 MG, UNKNOWN/D
     Route: 065
     Dates: start: 20101012, end: 20101017

REACTIONS (2)
  - DEATH [None]
  - DRUG INEFFECTIVE [None]
